FAERS Safety Report 4771101-3 (Version None)
Quarter: 2005Q3

REPORT INFORMATION
  Report Type: 
  Country: None (occurrence: None)
  Receive Date: 20050914
  Receipt Date: 20050901
  Transmission Date: 20060218
  Serious: Yes (Other)
  Sender: FDA-Public Use
  Company Number: 2005123284

PATIENT
  Age: 24 Year
  Sex: Female
  Weight: 58.9676 kg

DRUGS (1)
  1. BENADRYL [Suspect]
     Indication: HYPERSENSITIVITY
     Dosage: 2 PILLS ONCE, ORAL
     Route: 048
     Dates: start: 20050901, end: 20050901

REACTIONS (6)
  - CHEST PAIN [None]
  - DYSARTHRIA [None]
  - DYSPHAGIA [None]
  - MALAISE [None]
  - PHARYNGOLARYNGEAL PAIN [None]
  - SPEECH DISORDER [None]
